FAERS Safety Report 23579887 (Version 2)
Quarter: 2024Q1

REPORT INFORMATION
  Report Type: Report from Study
  Country: US (occurrence: US)
  Receive Date: 20240229
  Receipt Date: 20240301
  Transmission Date: 20240409
  Serious: Yes (Hospitalization, Other)
  Sender: FDA-Public Use
  Company Number: US-ABBVIE-5582274

PATIENT
  Sex: Female

DRUGS (3)
  1. RINVOQ [Suspect]
     Active Substance: UPADACITINIB
     Indication: Eczema
     Dosage: FORM STRENGTH: 15 MG
     Route: 048
     Dates: start: 20231212, end: 20240119
  2. RINVOQ [Suspect]
     Active Substance: UPADACITINIB
     Indication: Eczema
     Dosage: LAST ADMIN DATE 2023?FORM STRENGTH: 15 MILLIGRAM
     Route: 048
     Dates: start: 202311
  3. ADBRY [Concomitant]
     Active Substance: TRALOKINUMAB-LDRM
     Indication: Product used for unknown indication

REACTIONS (6)
  - Fall [Recovering/Resolving]
  - Coronary arterial stent insertion [Recovering/Resolving]
  - Eczema [Not Recovered/Not Resolved]
  - Varicella virus test positive [Recovered/Resolved]
  - Coronary arterial stent insertion [Unknown]
  - SARS-CoV-2 test positive [Recovered/Resolved]

NARRATIVE: CASE EVENT DATE: 20240101
